APPROVED DRUG PRODUCT: POKONZA
Active Ingredient: POTASSIUM CHLORIDE
Strength: 10MEQ/15ML
Dosage Form/Route: SOLUTION;ORAL
Application: N206814 | Product #003
Applicant: GENUS LIFE SCIENCES INC
Approved: Nov 25, 2025 | RLD: Yes | RS: No | Type: RX